FAERS Safety Report 5007427-8 (Version None)
Quarter: 2006Q2

REPORT INFORMATION
  Report Type: 
  Country: None (occurrence: None)
  Receive Date: 20060518
  Receipt Date: 20060518
  Transmission Date: 20061013
  Serious: Yes (Life-Threatening)
  Sender: FDA-Public Use
  Company Number: None

PATIENT
  Age: 54 Year
  Sex: Female
  Weight: 81.6475 kg

DRUGS (1)
  1. CRESTOR [Suspect]
     Indication: DIABETES MELLITUS
     Dosage: LOWEST DOSAGE AVAILABLE ONCE DAILY
     Dates: start: 20060203, end: 20060508

REACTIONS (12)
  - ASTHENIA [None]
  - BACK PAIN [None]
  - BREATH ODOUR [None]
  - CHROMATURIA [None]
  - DIARRHOEA [None]
  - DIZZINESS [None]
  - DYSSTASIA [None]
  - ILL-DEFINED DISORDER [None]
  - PAIN IN EXTREMITY [None]
  - POLYDIPSIA [None]
  - RENAL PAIN [None]
  - STOMACH DISCOMFORT [None]
